FAERS Safety Report 22310974 (Version 1)
Quarter: 2023Q2

REPORT INFORMATION
  Report Type: Spontaneous
  Country: US (occurrence: None)
  Receive Date: 20230511
  Receipt Date: 20230511
  Transmission Date: 20230722
  Serious: No
  Sender: FDA-Public Use
  Company Number: None

PATIENT

DRUGS (2)
  1. RISEDRONATE SODIUM [Suspect]
     Active Substance: RISEDRONATE SODIUM
  2. IBANDRONATE SODIUM [Suspect]
     Active Substance: IBANDRONATE SODIUM

REACTIONS (1)
  - Product dispensing error [None]
